FAERS Safety Report 6183465-7 (Version None)
Quarter: 2009Q2

REPORT INFORMATION
  Report Type: 
  Country: None (occurrence: None)
  Receive Date: 20090507
  Receipt Date: 20090430
  Transmission Date: 20091009
  Serious: Yes (Hospitalization)
  Sender: FDA-Public Use
  Company Number: CH-BAYER-200919745GPV

PATIENT
  Age: 66 Year
  Sex: Male

DRUGS (2)
  1. CIPROFLOXACIN HCL [Suspect]
     Indication: OTITIS MEDIA
     Route: 048
     Dates: start: 20081201, end: 20081201
  2. PREDNISON [Suspect]
     Indication: OTITIS MEDIA
     Route: 048
     Dates: start: 20081201, end: 20081201

REACTIONS (4)
  - ABDOMINAL PAIN UPPER [None]
  - GASTRITIS [None]
  - NAUSEA [None]
  - OESOPHAGEAL CANDIDIASIS [None]
